FAERS Safety Report 25850552 (Version 1)
Quarter: 2025Q3

REPORT INFORMATION
  Report Type: Spontaneous
  Country: JP (occurrence: JP)
  Receive Date: 20250926
  Receipt Date: 20250926
  Transmission Date: 20251020
  Serious: Yes (Hospitalization)
  Sender: TEVA
  Company Number: JP-TEVA-VS-3375656

PATIENT
  Age: 20 Year
  Sex: Female

DRUGS (1)
  1. MODAFINIL [Suspect]
     Active Substance: MODAFINIL
     Indication: Narcolepsy
     Route: 048

REACTIONS (2)
  - Substance-induced psychotic disorder [Recovering/Resolving]
  - Schizophrenia [Recovering/Resolving]
